FAERS Safety Report 9921285 (Version 1)
Quarter: 2014Q1

REPORT INFORMATION
  Report Type: Spontaneous
  Country: FR (occurrence: FR)
  Receive Date: 20140225
  Receipt Date: 20140225
  Transmission Date: 20141002
  Serious: Yes (Hospitalization)
  Sender: FDA-Public Use
  Company Number: PHHY2014FR021234

PATIENT
  Sex: 0

DRUGS (5)
  1. TEGRETOL [Suspect]
     Dosage: 0.5 DF, DAILY
     Route: 048
     Dates: start: 20140126, end: 20140128
  2. INEXIUM//ESOMEPRAZOLE MAGNESIUM [Suspect]
     Dosage: UNK UKN, UNK
     Dates: end: 20140128
  3. SEROPLEX [Suspect]
     Dosage: UNK
  4. CO-APROVEL [Suspect]
     Dosage: UNK UKN, UNK
     Dates: end: 20140128
  5. KEPPRA [Concomitant]
     Dosage: UNK UKN, UNK

REACTIONS (2)
  - Convulsion [Recovering/Resolving]
  - Hyponatraemia [Recovering/Resolving]
